FAERS Safety Report 19898795 (Version 1)
Quarter: 2021Q3

REPORT INFORMATION
  Report Type: Spontaneous
  Country: US (occurrence: US)
  Receive Date: 20210929
  Receipt Date: 20210929
  Transmission Date: 20211014
  Serious: No
  Sender: FDA-Public Use
  Company Number: US-LUPIN PHARMACEUTICALS INC.-2021-18173

PATIENT
  Sex: Male
  Weight: 83.91 kg

DRUGS (5)
  1. PHENELZINE SULFATE. [Suspect]
     Active Substance: PHENELZINE SULFATE
     Indication: ANXIETY
     Dosage: UNK, 82.5MG, FIVE AND A HALF 15MG TABLETS ONCE A DAY BY MOUTH
     Route: 048
  2. KLONOPIN [Concomitant]
     Active Substance: CLONAZEPAM
     Indication: PRODUCT USED FOR UNKNOWN INDICATION
     Dosage: UNK
     Route: 065
  3. PHENELZINE SULFATE. [Suspect]
     Active Substance: PHENELZINE SULFATE
     Indication: DEPRESSION
     Dosage: UNK
     Route: 048
  4. PHENELZINE TABLET 15 MG [Suspect]
     Active Substance: PHENELZINE
     Indication: ANXIETY
  5. PHENELZINE TABLET 15 MG [Suspect]
     Active Substance: PHENELZINE
     Indication: DEPRESSION
     Dosage: 15 MG
     Route: 048

REACTIONS (3)
  - Adverse event [Unknown]
  - Insomnia [Unknown]
  - Drug ineffective [Unknown]
